FAERS Safety Report 7602068-8 (Version None)
Quarter: 2011Q3

REPORT INFORMATION
  Report Type: 
  Country: None (occurrence: None)
  Receive Date: 20110711
  Receipt Date: 20110629
  Transmission Date: 20111222
  Serious: Yes (Other)
  Sender: FDA-Public Use
  Company Number: JP-SANOFI-AVENTIS-2011SA042273

PATIENT
  Age: 72 Year
  Sex: Male

DRUGS (5)
  1. FLUOROURACIL [Concomitant]
     Dates: start: 20090101
  2. OXALIPLATIN [Suspect]
     Indication: RECTOSIGMOID CANCER METASTATIC
     Route: 065
     Dates: start: 20090101
  3. LEUCOVORIN CALCIUM [Concomitant]
     Dates: start: 20090101
  4. BEVACIZUMAB [Suspect]
     Indication: RECTOSIGMOID CANCER METASTATIC
     Route: 041
     Dates: start: 20090101, end: 20090701
  5. IRINOTECAN HCL [Concomitant]
     Dates: start: 20090101

REACTIONS (2)
  - SPLENOMEGALY [None]
  - THROMBOCYTOPENIA [None]
